FAERS Safety Report 16248197 (Version 2)
Quarter: 2020Q1

REPORT INFORMATION
  Report Type: Report from Study
  Country: US (occurrence: US)
  Receive Date: 20190428
  Receipt Date: 20200224
  Transmission Date: 20200409
  Serious: No
  Sender: FDA-Public Use
  Company Number: PHEH2019US017545

PATIENT
  Sex: Male

DRUGS (1)
  1. COSENTYX [Suspect]
     Active Substance: SECUKINUMAB
     Indication: PSORIASIS
     Dosage: 300 MG, QW FOR 5 WEEKS THEN Q4W
     Route: 058
     Dates: start: 20190308

REACTIONS (4)
  - Joint swelling [Unknown]
  - Neck pain [Unknown]
  - Therapeutic product effect incomplete [Unknown]
  - Product dose omission [Unknown]
